FAERS Safety Report 7264757-7 (Version None)
Quarter: 2011Q1

REPORT INFORMATION
  Report Type: 
  Country: None (occurrence: None)
  Receive Date: 20110131
  Receipt Date: 20101122
  Transmission Date: 20110831
  Serious: No
  Sender: FDA-Public Use
  Company Number: US-BAYER-2010-006697

PATIENT
  Sex: Female

DRUGS (4)
  1. ALEVE (CAPLET) [Suspect]
     Indication: ARTHRITIS
     Route: 048
  2. JANUVIA [Concomitant]
  3. METFORMIN [Concomitant]
  4. THYROID [Concomitant]

REACTIONS (1)
  - DYSPEPSIA [None]
